FAERS Safety Report 14879639 (Version 2)
Quarter: 2018Q2

REPORT INFORMATION
  Report Type: Spontaneous
  Country: GB (occurrence: GB)
  Receive Date: 20180511
  Receipt Date: 20180523
  Transmission Date: 20180711
  Serious: Yes (Other)
  Sender: FDA-Public Use
  Company Number: GB-DRREDDYS-GER/UKI/18/0098798

PATIENT
  Age: 32 Year
  Sex: Female

DRUGS (5)
  1. HALOPERIDOL. [Suspect]
     Active Substance: HALOPERIDOL
     Indication: HALLUCINATION, AUDITORY
     Dosage: DOSAGE FORM: UNSPECIFIED
  2. RISPERIDONE. [Suspect]
     Active Substance: RISPERIDONE
     Indication: HALLUCINATION, AUDITORY
     Dosage: DOSAGE FORM: UNSPECIFIED
  3. ZUCLOPENTHIXOL [Suspect]
     Active Substance: ZUCLOPENTHIXOL
     Indication: HALLUCINATION, AUDITORY
     Dosage: DOSAGE FORM: UNKNOWN
  4. AMISULPRIDE [Suspect]
     Active Substance: AMISULPRIDE
     Indication: HALLUCINATION, AUDITORY
     Dosage: DOSAGE FORM: UNKNOWN
  5. OLANZAPINE. [Suspect]
     Active Substance: OLANZAPINE
     Indication: HALLUCINATION, AUDITORY
     Dosage: DOSAGE FORM: UNKNOWN
     Route: 065

REACTIONS (2)
  - Suicidal ideation [Unknown]
  - Drug ineffective [Unknown]
